FAERS Safety Report 7676683-X (Version None)
Quarter: 2011Q3

REPORT INFORMATION
  Report Type: 
  Country: None (occurrence: None)
  Receive Date: 20110811
  Receipt Date: 20110804
  Transmission Date: 20111222
  Serious: Yes (Other)
  Sender: FDA-Public Use
  Company Number: DE-PFIZER INC-2011148936

PATIENT
  Age: 39 Year
  Sex: Male
  Weight: 92 kg

DRUGS (2)
  1. AZULFIDINE [Suspect]
     Indication: CROHN'S DISEASE
     Dosage: 4.5 G, PER DAY
     Dates: start: 20101201, end: 20101216
  2. AZULFIDINE [Suspect]
     Dosage: 3.0 G, PER DAY
     Dates: start: 20101217, end: 20101230

REACTIONS (7)
  - DECREASED APPETITE [None]
  - NAUSEA [None]
  - SLEEP DISORDER [None]
  - LIVER FUNCTION TEST ABNORMAL [None]
  - AGEUSIA [None]
  - GINGIVITIS [None]
  - STOMATITIS [None]
